FAERS Safety Report 24276321 (Version 2)
Quarter: 2024Q3

REPORT INFORMATION
  Report Type: Spontaneous
  Country: FR (occurrence: FR)
  Receive Date: 20240903
  Receipt Date: 20240916
  Transmission Date: 20241017
  Serious: Yes (Hospitalization, Other)
  Sender: AVERITAS
  Company Number: FR-GRUNENTHAL-2024-124470

PATIENT
  Sex: Female

DRUGS (3)
  1. QUTENZA [Suspect]
     Active Substance: CAPSAICIN
     Indication: Neuralgia
     Dosage: 1 DOSAGE FORM, ONCE
     Route: 003
     Dates: start: 20240808, end: 20240808
  2. QUTENZA [Suspect]
     Active Substance: CAPSAICIN
     Indication: Pain in extremity
  3. CLINDAMYCIN PHOSPHATE [Concomitant]
     Active Substance: CLINDAMYCIN PHOSPHATE
     Indication: Dental care
     Dosage: UNK
     Route: 065
     Dates: start: 20240729, end: 20240811

REACTIONS (6)
  - Skin discomfort [Unknown]
  - Pruritus [Recovering/Resolving]
  - Peripheral swelling [Unknown]
  - Angioedema [Unknown]
  - Skin lesion [Unknown]
  - Anaphylactoid reaction [Unknown]

NARRATIVE: CASE EVENT DATE: 20240801
